FAERS Safety Report 16626646 (Version 2)
Quarter: 2019Q3

REPORT INFORMATION
  Report Type: Spontaneous
  Country: US (occurrence: US)
  Receive Date: 20190724
  Receipt Date: 20190806
  Transmission Date: 20191004
  Serious: Yes (Hospitalization)
  Sender: FDA-Public Use
  Company Number: US-CELGENEUS-USA-20190708297

PATIENT
  Age: 49 Year
  Sex: Female

DRUGS (12)
  1. ABRAXANE [Suspect]
     Active Substance: PACLITAXEL
     Indication: NON-SMALL CELL LUNG CANCER STAGE IV
     Dosage: 204 MILLIGRAM
     Route: 041
     Dates: start: 20190607, end: 20190607
  2. CARBOPLATIN. [Suspect]
     Active Substance: CARBOPLATIN
     Dosage: 650 MILLIGRAM
     Route: 041
     Dates: start: 20190710, end: 20190710
  3. MEDI4736 (DURVALUMAB) [Suspect]
     Active Substance: DURVALUMAB
     Indication: NON-SMALL CELL LUNG CANCER STAGE IV
     Dosage: 1500 MILLIGRAM
     Route: 041
     Dates: start: 20190614, end: 20190614
  4. CARBOPLATIN. [Suspect]
     Active Substance: CARBOPLATIN
     Indication: NON-SMALL CELL LUNG CANCER STAGE IV
     Dosage: 650 MILLIGRAM
     Route: 041
     Dates: start: 20190614, end: 20190614
  5. ABRAXANE [Suspect]
     Active Substance: PACLITAXEL
     Indication: NON-SMALL CELL LUNG CANCER STAGE IV
     Dosage: 204 MILLIGRAM
     Route: 041
     Dates: start: 20190703, end: 20190703
  6. ABRAXANE [Suspect]
     Active Substance: PACLITAXEL
     Indication: NON-SMALL CELL LUNG CANCER STAGE IV
     Dosage: 204 MILLIGRAM
     Route: 041
     Dates: start: 20190524, end: 20190524
  7. ABRAXANE [Suspect]
     Active Substance: PACLITAXEL
     Indication: NON-SMALL CELL LUNG CANCER STAGE IV
     Dosage: 204 MILLIGRAM
     Route: 041
     Dates: start: 20190531, end: 20190531
  8. ABRAXANE [Suspect]
     Active Substance: PACLITAXEL
     Indication: NON-SMALL CELL LUNG CANCER STAGE IV
     Dosage: 204 MILLIGRAM
     Route: 041
     Dates: start: 20190614, end: 20190614
  9. ABRAXANE [Suspect]
     Active Substance: PACLITAXEL
     Dosage: 204 MILLIGRAM
     Route: 041
     Dates: start: 20190710, end: 20190710
  10. MEDI4736 (DURVALUMAB) [Suspect]
     Active Substance: DURVALUMAB
     Indication: NON-SMALL CELL LUNG CANCER STAGE IV
     Dosage: 1500 MILLIGRAM
     Route: 041
     Dates: start: 20190524, end: 20190524
  11. ABRAXANE [Suspect]
     Active Substance: PACLITAXEL
     Indication: NON-SMALL CELL LUNG CANCER STAGE IV
     Dosage: 204 MILLIGRAM
     Route: 041
     Dates: start: 20190625, end: 20190625
  12. CARBOPLATIN. [Suspect]
     Active Substance: CARBOPLATIN
     Indication: NON-SMALL CELL LUNG CANCER STAGE IV
     Dosage: 676 MILLIGRAM
     Route: 041
     Dates: start: 20190524, end: 20190524

REACTIONS (1)
  - Ludwig angina [Recovered/Resolved]

NARRATIVE: CASE EVENT DATE: 20190712
